FAERS Safety Report 11419549 (Version 1)
Quarter: 2015Q3

REPORT INFORMATION
  Report Type: Spontaneous
  Country: IT (occurrence: IT)
  Receive Date: 20150826
  Receipt Date: 20150826
  Transmission Date: 20151125
  Serious: Yes (Hospitalization)
  Sender: FDA-Public Use
  Company Number: IT-BANPHARM-20154141

PATIENT
  Age: 2 Year
  Sex: Male

DRUGS (2)
  1. IBUPROFEN UNKNOWN PRODUCT [Suspect]
     Active Substance: IBUPROFEN
     Indication: PYREXIA
  2. IBUPROFEN UNKNOWN PRODUCT [Suspect]
     Active Substance: IBUPROFEN
     Indication: PYREXIA
     Dosage: 2 DF, 10 MG/KG PER DOSE,

REACTIONS (3)
  - Melaena [Recovered/Resolved]
  - Erosive oesophagitis [Recovered/Resolved]
  - Haematemesis [Recovered/Resolved]
